FAERS Safety Report 23156684 (Version 1)
Quarter: 2023Q4

REPORT INFORMATION
  Report Type: Report from Study
  Country: US (occurrence: US)
  Receive Date: 20231107
  Receipt Date: 20231107
  Transmission Date: 20240110
  Serious: Yes (Other)
  Sender: FDA-Public Use
  Company Number: US-BIOGEN-2023BI01234456

PATIENT
  Sex: Female

DRUGS (1)
  1. VUMERITY [Suspect]
     Active Substance: DIROXIMEL FUMARATE
     Indication: Multiple sclerosis
     Route: 050
     Dates: start: 20210719, end: 20231012

REACTIONS (5)
  - White blood cell count decreased [Unknown]
  - Pneumonia [Recovered/Resolved]
  - Bronchitis [Recovered/Resolved]
  - Pharyngitis streptococcal [Recovered/Resolved]
  - Fatigue [Not Recovered/Not Resolved]

NARRATIVE: CASE EVENT DATE: 20230101
